FAERS Safety Report 23462381 (Version 2)
Quarter: 2024Q1

REPORT INFORMATION
  Report Type: Report from Study
  Country: EG (occurrence: EG)
  Receive Date: 20240131
  Receipt Date: 20240222
  Transmission Date: 20240409
  Serious: Yes (Hospitalization, Other)
  Sender: FDA-Public Use
  Company Number: EG-002147023-NVSC2023EG151093

PATIENT
  Age: 38 Year
  Sex: Male

DRUGS (3)
  1. COSENTYX [Suspect]
     Active Substance: SECUKINUMAB
     Indication: Ankylosing spondylitis
     Dosage: 1 DOSAGE FORM, QW (START DATE WAS IDENTIFIED KNOWING THAT: THE PATIENT STATED THAT HE TAKES HIS WEEK
     Route: 058
     Dates: start: 20230619
  2. COSENTYX [Suspect]
     Active Substance: SECUKINUMAB
     Dosage: 1 DOSAGE FORM, QMO (FOLLOWED BY 1 PREFILLED PEN MONTHLY AS MAINTENANCE DOSE)
     Route: 058
  3. COSENTYX [Suspect]
     Active Substance: SECUKINUMAB
     Dosage: 1 DOSAGE FORM (EVERY 28 DAYS)
     Route: 058
     Dates: end: 20231102

REACTIONS (9)
  - Gastroenteritis staphylococcal [Recovering/Resolving]
  - Intestinal mucosal atrophy [Recovering/Resolving]
  - Gluten sensitivity [Recovering/Resolving]
  - Lactose intolerance [Recovering/Resolving]
  - Gastrointestinal pain [Recovering/Resolving]
  - Pruritus [Unknown]
  - Abdominal pain upper [Recovered/Resolved]
  - Arthralgia [Recovering/Resolving]
  - Off label use [Recovered/Resolved]

NARRATIVE: CASE EVENT DATE: 20230619
